FAERS Safety Report 20304553 (Version 1)
Quarter: 2022Q1

REPORT INFORMATION
  Report Type: Spontaneous
  Country: US (occurrence: None)
  Receive Date: 20220105
  Receipt Date: 20220105
  Transmission Date: 20220423
  Serious: Yes (unspecified)
  Sender: FDA-Public Use
  Company Number: None

PATIENT
  Age: 70 Year
  Sex: Female
  Weight: 42.4 kg

DRUGS (3)
  1. OXALIPLATIN [Suspect]
     Active Substance: OXALIPLATIN
     Indication: Pancreatic carcinoma
     Dosage: OTHER FREQUENCY : EVERY 14 DAYS;?
     Route: 041
     Dates: start: 20211214
  2. IRINOTECAN [Suspect]
     Active Substance: IRINOTECAN
     Indication: Pancreatic carcinoma
     Dosage: OTHER FREQUENCY : EVERY 14 DAYS;?
     Route: 041
     Dates: start: 20211214
  3. FLUOROURACIL [Concomitant]
     Active Substance: FLUOROURACIL
     Dates: start: 20211214

REACTIONS (1)
  - Dysarthria [None]

NARRATIVE: CASE EVENT DATE: 20211228
